FAERS Safety Report 21707855 (Version 1)
Quarter: 2022Q4

REPORT INFORMATION
  Report Type: Report from Study
  Country: US (occurrence: US)
  Receive Date: 20221209
  Receipt Date: 20221209
  Transmission Date: 20230113
  Serious: Yes (Other)
  Sender: FDA-Public Use
  Company Number: US-SEATTLE GENETICS-2022SGN11621

PATIENT
  Age: 64 Year
  Sex: Female

DRUGS (1)
  1. TUCATINIB [Suspect]
     Active Substance: TUCATINIB
     Indication: Breast cancer female
     Route: 065

REACTIONS (3)
  - Renal impairment [Unknown]
  - Road traffic accident [Unknown]
  - Head injury [Unknown]

NARRATIVE: CASE EVENT DATE: 20221106
